FAERS Safety Report 6613720-5 (Version None)
Quarter: 2010Q1

REPORT INFORMATION
  Report Type: 
  Country: None (occurrence: None)
  Receive Date: 20100304
  Receipt Date: 20100301
  Transmission Date: 20100710
  Serious: Yes (Hospitalization, Other)
  Sender: FDA-Public Use
  Company Number: GR-ROXANE LABORATORIES, INC.-2010-RO-00216RO

PATIENT
  Age: 46 Year
  Sex: Female

DRUGS (11)
  1. AZATHIOPRINE [Suspect]
     Indication: SYSTEMIC LUPUS ERYTHEMATOSUS
     Dosage: 50 MG
     Route: 048
  2. AZATHIOPRINE [Suspect]
     Dosage: 100 MG
     Route: 048
  3. METHYLPREDNISOLONE [Suspect]
     Indication: SYSTEMIC LUPUS ERYTHEMATOSUS
     Dosage: 20 MG
     Route: 048
  4. ACENOCUMAROL [Suspect]
     Indication: ISCHAEMIC STROKE
  5. ACENOCUMAROL [Suspect]
     Indication: CARDIOLIPIN ANTIBODY
  6. ACENOCUMAROL [Suspect]
     Indication: SYSTEMIC LUPUS ERYTHEMATOSUS
  7. ALENDRONATE SODIUM [Suspect]
     Indication: SYSTEMIC LUPUS ERYTHEMATOSUS
  8. VITAMIN D [Suspect]
     Indication: SYSTEMIC LUPUS ERYTHEMATOSUS
  9. CALCIUM [Suspect]
     Indication: SYSTEMIC LUPUS ERYTHEMATOSUS
  10. HEPARIN [Suspect]
     Indication: INTERNATIONAL NORMALISED RATIO INCREASED
  11. PREDNISOLONE [Concomitant]
     Indication: SYSTEMIC LUPUS ERYTHEMATOSUS
     Route: 042

REACTIONS (7)
  - BLOOD ALKALINE PHOSPHATASE INCREASED [None]
  - BLOOD BILIRUBIN INCREASED [None]
  - BONE MARROW FAILURE [None]
  - CHOLESTATIC LIVER INJURY [None]
  - IDIOSYNCRATIC DRUG REACTION [None]
  - INTERNATIONAL NORMALISED RATIO INCREASED [None]
  - LEUKOPENIA [None]
